FAERS Safety Report 16310010 (Version 2)
Quarter: 2019Q3

REPORT INFORMATION
  Report Type: Report from Study
  Country: DE (occurrence: DE)
  Receive Date: 20190514
  Receipt Date: 20190820
  Transmission Date: 20191004
  Serious: No
  Sender: FDA-Public Use
  Company Number: DE-ROCHE-2316677

PATIENT
  Sex: Male
  Weight: 86 kg

DRUGS (15)
  1. OCRELIZUMAB. [Suspect]
     Active Substance: OCRELIZUMAB
     Indication: PRIMARY PROGRESSIVE MULTIPLE SCLEROSIS
     Dosage: MOST RECENT DOSE WAS RECEIVED ON 18/APR/2018
     Route: 042
     Dates: start: 20180404
  2. DEKRISTOL [Concomitant]
     Active Substance: CHOLECALCIFEROL
     Indication: VITAMIN D DEFICIENCY
     Route: 048
     Dates: start: 20150721
  3. PREDNISOLON [PREDNISOLONE] [Concomitant]
     Active Substance: PREDNISOLONE
     Indication: PROPHYLAXIS
     Dosage: INDICATION: PROPHYLAXIS OF SIDE EFFECTS OF OCREVUS ADMINISTRATION
     Route: 042
     Dates: start: 20180418, end: 20180418
  4. PREDNISOLON [PREDNISOLONE] [Concomitant]
     Active Substance: PREDNISOLONE
     Dosage: INDICATION: PROPHYLAXIS OF SIDE EFFECTS OF OCREVUS ADMINISTRATION
     Route: 042
     Dates: start: 20190425, end: 20190425
  5. RANITIDIN [Concomitant]
     Active Substance: RANITIDINE HYDROCHLORIDE
     Indication: PROPHYLAXIS
     Dosage: INDICATION: PROPHYLAXIS OF SIDE EFFECTS OF OCREVUS ADMINISTRATION
     Route: 048
     Dates: start: 20180403, end: 20180405
  6. PREDNISOLUT [PREDNISOLONE HEMISUCCINATE] [Concomitant]
     Indication: PROPHYLAXIS
     Dosage: INDICATION: PROPHYLAXIS OF SIDE EFFECTS OF OCREVUS ADMINISTRATION
     Route: 042
     Dates: start: 20180404, end: 20180404
  7. PREDNISOLUT [PREDNISOLONE HEMISUCCINATE] [Concomitant]
     Dosage: INDICATION: PROPHYLAXIS OF SIDE EFFECTS OF OCREVUS ADMINISTRATION
     Route: 042
     Dates: start: 20181025, end: 20181025
  8. AERIUS (DESLORATADINE) [Concomitant]
     Active Substance: DESLORATADINE
     Dosage: INDICATION: PROPHYLAXIS OF SIDE EFFECTS OF OCREVUS ADMINISTRATION
     Route: 048
     Dates: start: 20180417, end: 20180419
  9. RANITIDIN [Concomitant]
     Active Substance: RANITIDINE HYDROCHLORIDE
     Dosage: INDICATION: PROPHYLAXIS OF SIDE EFFECTS OF OCREVUS ADMINISTRATION
     Route: 048
     Dates: start: 20190424, end: 20190426
  10. OCRELIZUMAB. [Suspect]
     Active Substance: OCRELIZUMAB
     Route: 042
     Dates: start: 20181025
  11. RANITIDIN [Concomitant]
     Active Substance: RANITIDINE HYDROCHLORIDE
     Dosage: INDICATION: PROPHYLAXIS OF SIDE EFFECTS OF OCREVUS ADMINISTRATION
     Route: 048
     Dates: start: 20181024, end: 20181026
  12. AERIUS (DESLORATADINE) [Concomitant]
     Active Substance: DESLORATADINE
     Indication: PROPHYLAXIS
     Dosage: INDICATION: PROPHYLAXIS OF SIDE EFFECTS OF OCREVUS ADMINISTRATION
     Route: 048
     Dates: start: 20180403, end: 20180405
  13. AERIUS (DESLORATADINE) [Concomitant]
     Active Substance: DESLORATADINE
     Dosage: INDICATION: PROPHYLAXIS OF SIDE EFFECTS OF OCREVUS ADMINISTRATION
     Route: 048
     Dates: start: 20190424, end: 20190426
  14. AERIUS (DESLORATADINE) [Concomitant]
     Active Substance: DESLORATADINE
     Dosage: INDICATION: PROPHYLAXIS OF SIDE EFFECTS OF OCREVUS ADMINISTRATION
     Route: 048
     Dates: start: 20181024, end: 20181026
  15. RANITIDIN [Concomitant]
     Active Substance: RANITIDINE HYDROCHLORIDE
     Dosage: INDICATION: PROPHYLAXIS OF SIDE EFFECTS OF OCREVUS ADMINISTRATION
     Route: 048
     Dates: start: 20180417, end: 20180419

REACTIONS (1)
  - Nasopharyngitis [Recovered/Resolved]
